FAERS Safety Report 15652718 (Version 1)
Quarter: 2018Q4

REPORT INFORMATION
  Report Type: Spontaneous
  Country: JP (occurrence: JP)
  Receive Date: 20181123
  Receipt Date: 20181123
  Transmission Date: 20190205
  Serious: Yes (Hospitalization, Other)
  Sender: FDA-Public Use
  Company Number: JP-009507513-1811JPN008691

PATIENT
  Age: 69 Year
  Sex: Male

DRUGS (3)
  1. YERVOY [Suspect]
     Active Substance: IPILIMUMAB
     Indication: MALIGNANT MELANOMA
     Dosage: 212 MG/DAY
     Route: 041
     Dates: start: 20180309, end: 20180501
  2. OPDIVO [Suspect]
     Active Substance: NIVOLUMAB
     Indication: MALIGNANT MELANOMA
     Dosage: 142 MG/DAY
     Route: 041
     Dates: start: 20170731, end: 20180206
  3. KEYTRUDA [Suspect]
     Active Substance: PEMBROLIZUMAB
     Dosage: 130 MG, UNK
     Route: 041
     Dates: start: 20180613

REACTIONS (3)
  - Hypophysitis [Unknown]
  - Neuropathy peripheral [Not Recovered/Not Resolved]
  - Nephritis [Unknown]

NARRATIVE: CASE EVENT DATE: 2018
